FAERS Safety Report 12465869 (Version 1)
Quarter: 2016Q2

REPORT INFORMATION
  Report Type: Report from Study
  Country: RO (occurrence: RO)
  Receive Date: 20160614
  Receipt Date: 20160614
  Transmission Date: 20160815
  Serious: Yes (Other)
  Sender: FDA-Public Use
  Company Number: RO-KADMON PHARMACEUTICALS, LLC-KAD201606-002162

PATIENT
  Age: 63 Year

DRUGS (10)
  1. RIBAVIRIN. [Suspect]
     Active Substance: RIBAVIRIN
     Indication: HEPATITIS C
     Dosage: FILM-COATED TABLET
     Route: 048
     Dates: start: 20160215, end: 20160508
  2. URSOFALK [Concomitant]
     Active Substance: URSODIOL
     Indication: LIVER DISORDER
     Route: 048
     Dates: start: 201204
  3. CORYOL [Concomitant]
     Active Substance: CARVEDILOL
     Indication: HYPERTENSION
     Route: 048
     Dates: start: 201112
  4. RIBAVIRIN. [Suspect]
     Active Substance: RIBAVIRIN
     Indication: HEPATIC CIRRHOSIS
  5. DETRALEX (CAPIVEN) [Concomitant]
     Indication: VARICES OESOPHAGEAL
     Route: 048
     Dates: start: 201204
  6. EXVIERA [Suspect]
     Active Substance: DASABUVIR
     Indication: HEPATIC CIRRHOSIS
  7. EXVIERA [Suspect]
     Active Substance: DASABUVIR
     Indication: HEPATITIS C
     Dosage: FILM-COATED TABLET
     Route: 048
     Dates: start: 20160215, end: 20160508
  8. VIEKIRAX [Suspect]
     Active Substance: OMBITASVIR\PARITAPREVIR\RITONAVIR
     Indication: HEPATITIS C
     Dosage: FILM-COATED TABLET
     Route: 048
     Dates: start: 20160215, end: 20160508
  9. VIEKIRAX [Suspect]
     Active Substance: OMBITASVIR\PARITAPREVIR\RITONAVIR
     Indication: HEPATIC CIRRHOSIS
  10. INDAPAMIDE. [Concomitant]
     Active Substance: INDAPAMIDE
     Indication: HYPERTENSION
     Route: 048
     Dates: start: 201112

REACTIONS (6)
  - Dizziness [Unknown]
  - Palpitations [Unknown]
  - Macular hole [Unknown]
  - Nausea [Unknown]
  - Anaemia [Unknown]
  - Macular degeneration [Unknown]

NARRATIVE: CASE EVENT DATE: 20160216
